FAERS Safety Report 13357643 (Version 1)
Quarter: 2017Q1

REPORT INFORMATION
  Report Type: Spontaneous
  Country: US (occurrence: US)
  Receive Date: 20170322
  Receipt Date: 20170322
  Transmission Date: 20170429
  Serious: No
  Sender: FDA-Public Use
  Company Number: US-BEH-2017079015

PATIENT
  Sex: Female
  Weight: 79.37 kg

DRUGS (31)
  1. EPINEPHRINE. [Concomitant]
     Active Substance: EPINEPHRINE
     Route: 065
  2. GAMASTAN [Concomitant]
     Active Substance: HUMAN IMMUNOGLOBULIN G
     Route: 065
  3. PREDNISONE. [Concomitant]
     Active Substance: PREDNISONE
     Route: 065
  4. ATIVAN [Concomitant]
     Active Substance: LORAZEPAM
     Route: 065
  5. PAXIL [Concomitant]
     Active Substance: PAROXETINE HYDROCHLORIDE
     Route: 065
  6. OXYCODONE [Concomitant]
     Active Substance: OXYCODONE
     Route: 065
  7. ACETAMINOPHEN. [Concomitant]
     Active Substance: ACETAMINOPHEN
     Route: 065
  8. NASONEX [Concomitant]
     Active Substance: MOMETASONE FUROATE
     Route: 065
  9. FOLIC ACID. [Concomitant]
     Active Substance: FOLIC ACID
     Route: 065
  10. FLAXSEED [Concomitant]
     Active Substance: FLAX SEED
     Route: 065
  11. MAGNESIUM OXIDE. [Concomitant]
     Active Substance: MAGNESIUM OXIDE
     Route: 065
  12. HIZENTRA [Suspect]
     Active Substance: HUMAN IMMUNOGLOBULIN G
     Indication: SELECTIVE IGG SUBCLASS DEFICIENCY
     Dosage: 100 MG/KG, QW
     Route: 058
     Dates: start: 20170131
  13. DURAGESIC [Concomitant]
     Active Substance: FENTANYL
     Route: 065
  14. CEFDINIR. [Concomitant]
     Active Substance: CEFDINIR
     Route: 065
  15. OMEPRAZOLE. [Concomitant]
     Active Substance: OMEPRAZOLE
     Route: 065
  16. LYRICA [Concomitant]
     Active Substance: PREGABALIN
     Route: 065
  17. VITAMIN E                          /00110501/ [Concomitant]
     Active Substance: TOCOPHEROL
     Route: 065
  18. VITAMIN C [Concomitant]
     Active Substance: ASCORBIC ACID
     Route: 065
  19. DHEA [Concomitant]
     Active Substance: PRASTERONE
     Route: 065
  20. FEXOFENADINE [Concomitant]
     Active Substance: FEXOFENADINE\FEXOFENADINE HYDROCHLORIDE
     Route: 065
  21. CALTRATE                           /00944201/ [Concomitant]
     Active Substance: CALCIUM CARBONATE\CHOLECALCIFEROL
     Route: 065
  22. METHOTREXATE. [Concomitant]
     Active Substance: METHOTREXATE
     Route: 065
  23. TRIPLE FLEX                        /01729501/ [Concomitant]
     Route: 065
  24. DIPHENHYDRAMINE. [Concomitant]
     Active Substance: DIPHENHYDRAMINE
     Route: 065
  25. TRAZODONE [Concomitant]
     Active Substance: TRAZODONE HYDROCHLORIDE
     Route: 065
  26. VICODIN [Concomitant]
     Active Substance: ACETAMINOPHEN\HYDROCODONE BITARTRATE
     Route: 065
  27. PLAQUENIL                          /00072602/ [Concomitant]
     Active Substance: HYDROXYCHLOROQUINE DIPHOSPHATE
     Route: 065
  28. FROVATRIPTAN. [Concomitant]
     Active Substance: FROVATRIPTAN
     Route: 065
  29. PRESERVISION [Concomitant]
     Active Substance: MINERALS\VITAMINS
     Route: 065
  30. LMX                                /00033401/ [Concomitant]
     Route: 065
  31. FERREX [Concomitant]
     Route: 065

REACTIONS (1)
  - Weight increased [Unknown]
